FAERS Safety Report 13379992 (Version 2)
Quarter: 2017Q3

REPORT INFORMATION
  Report Type: Spontaneous
  Country: US (occurrence: US)
  Receive Date: 20170328
  Receipt Date: 20170811
  Transmission Date: 20171127
  Serious: No
  Sender: FDA-Public Use
  Company Number: US-ACTELION-A-NJ2017-151519

PATIENT
  Age: 64 Year
  Sex: Female

DRUGS (11)
  1. GLYBURIDE. [Concomitant]
     Active Substance: GLYBURIDE
  2. ADEMPAS [Concomitant]
     Active Substance: RIOCIGUAT
  3. ARAVA [Concomitant]
     Active Substance: LEFLUNOMIDE
  4. DILTIAZEM CD [Concomitant]
     Active Substance: DILTIAZEM
  5. LISINOPRIL AND HYDROCHLOROTHIAZIDE [Concomitant]
     Active Substance: HYDROCHLOROTHIAZIDE\LISINOPRIL
  6. OPSUMIT [Suspect]
     Active Substance: MACITENTAN
     Indication: PULMONARY HYPERTENSION
     Dosage: 10 MG, QD
     Route: 048
  7. METFORMIN [Concomitant]
     Active Substance: METFORMIN HYDROCHLORIDE
     Indication: ESSENTIAL HYPERTENSION
  8. PROTONIX [Concomitant]
     Active Substance: PANTOPRAZOLE SODIUM
  9. ELIQUIS [Concomitant]
     Active Substance: APIXABAN
  10. TOUJEO [Concomitant]
     Active Substance: INSULIN GLARGINE
  11. METOPROLOL. [Concomitant]
     Active Substance: METOPROLOL

REACTIONS (5)
  - Anaemia [Unknown]
  - Nasal congestion [Recovering/Resolving]
  - Condition aggravated [Recovering/Resolving]
  - Multiple allergies [Recovering/Resolving]
  - Oxygen consumption increased [Recovering/Resolving]

NARRATIVE: CASE EVENT DATE: 20170306
